FAERS Safety Report 4956403-X (Version None)
Quarter: 2006Q1

REPORT INFORMATION
  Report Type: 
  Country: None (occurrence: None)
  Receive Date: 20060328
  Receipt Date: 20060328
  Transmission Date: 20060701
  Serious: Yes (Hospitalization)
  Sender: FDA-Public Use
  Company Number: None

PATIENT
  Age: 47 Year
  Sex: Male
  Weight: 144.4 kg

DRUGS (2)
  1. INDOMETHACIN [Suspect]
     Indication: BACK PAIN
     Dosage: 50MG  TID PO
     Route: 048
  2. CLOPIDOGREL [Suspect]
     Indication: CORONARY ARTERY DISEASE
     Dosage: 75 MG QD PO
     Route: 048

REACTIONS (4)
  - GASTRIC ULCER [None]
  - GASTROINTESTINAL HAEMORRHAGE [None]
  - PEPTIC ULCER [None]
  - TREATMENT NONCOMPLIANCE [None]
